FAERS Safety Report 16507635 (Version 3)
Quarter: 2019Q3

REPORT INFORMATION
  Report Type: Spontaneous
  Country: JP (occurrence: JP)
  Receive Date: 20190702
  Receipt Date: 20190729
  Transmission Date: 20191004
  Serious: Yes (Hospitalization, Other)
  Sender: FDA-Public Use
  Company Number: JP-BRISTOL-MYERS SQUIBB COMPANY-BMS-2018-111965

PATIENT
  Age: 69 Year
  Sex: Male
  Weight: 75.8 kg

DRUGS (1)
  1. OPDIVO [Suspect]
     Active Substance: NIVOLUMAB
     Indication: NON-SMALL CELL LUNG CANCER
     Dosage: 240 MG (03/10/2018,17/10, ??/11/2018)
     Route: 041
     Dates: start: 20181003

REACTIONS (4)
  - Hypersensitivity pneumonitis [Unknown]
  - Tachycardia [Unknown]
  - Hyperthermia [Unknown]
  - Dyspnoea [Unknown]

NARRATIVE: CASE EVENT DATE: 20181116
